FAERS Safety Report 7498738-5 (Version None)
Quarter: 2011Q2

REPORT INFORMATION
  Report Type: 
  Country: None (occurrence: None)
  Receive Date: 20110524
  Receipt Date: 20110511
  Transmission Date: 20111010
  Serious: Yes (Hospitalization)
  Sender: FDA-Public Use
  Company Number: US-ELI_LILLY_AND_COMPANY-US201105004050

PATIENT
  Age: 66 Year
  Sex: Female

DRUGS (8)
  1. LASIX [Concomitant]
     Dosage: UNK, 3/W
  2. PLAVIX [Concomitant]
     Dosage: UNK, 4/W
  3. ASPIRIN [Concomitant]
  4. METFORMIN HCL [Concomitant]
  5. CYMBALTA [Suspect]
     Dosage: 60 MG, QD
     Dates: start: 20110301
  6. CYMBALTA [Suspect]
     Indication: FIBROMYALGIA
     Dosage: 60 MG, QD
  7. CYMBALTA [Suspect]
     Dosage: 120 MG, QD
  8. CARDIZEM [Concomitant]

REACTIONS (6)
  - WEIGHT INCREASED [None]
  - DRUG INEFFECTIVE [None]
  - SURGERY [None]
  - ABDOMINAL DISTENSION [None]
  - PAIN [None]
  - ANXIETY [None]
